FAERS Safety Report 5859453-4 (Version None)
Quarter: 2008Q3

REPORT INFORMATION
  Report Type: 
  Country: None (occurrence: None)
  Receive Date: 20080826
  Receipt Date: 20080826
  Transmission Date: 20090109
  Serious: Yes (Other)
  Sender: FDA-Public Use
  Company Number: None

PATIENT
  Sex: Female
  Weight: 65.7716 kg

DRUGS (1)
  1. HALOPERIDOL [Suspect]
     Indication: AKATHISIA
     Dosage: 2 TABLETS TWICE DAILY PO
     Route: 048
     Dates: start: 20080512, end: 20080825

REACTIONS (1)
  - PANCREATITIS [None]
